FAERS Safety Report 26063322 (Version 1)
Quarter: 2025Q4

REPORT INFORMATION
  Report Type: Report from Study
  Country: AR (occurrence: AR)
  Receive Date: 20251119
  Receipt Date: 20251119
  Transmission Date: 20260118
  Serious: Yes (Other)
  Sender: AMGEN
  Company Number: AR-AMGEN-ARGSL2024191345

PATIENT
  Age: 71 Year
  Sex: Male

DRUGS (1)
  1. VECTIBIX [Suspect]
     Active Substance: PANITUMUMAB
     Indication: Colorectal cancer
     Dosage: UNK 15 DAYS
     Route: 065
     Dates: start: 20190610

REACTIONS (8)
  - Haematochezia [Recovering/Resolving]
  - Hepatic cyst [Not Recovered/Not Resolved]
  - Constipation [Unknown]
  - Pain [Recovering/Resolving]
  - Vomiting [Recovering/Resolving]
  - Acne [Unknown]
  - Therapy interrupted [Unknown]
  - Ill-defined disorder [Recovering/Resolving]

NARRATIVE: CASE EVENT DATE: 20250101
